FAERS Safety Report 23844715 (Version 1)
Quarter: 2024Q2

REPORT INFORMATION
  Report Type: Spontaneous
  Country: CN (occurrence: CN)
  Receive Date: 20240511
  Receipt Date: 20240511
  Transmission Date: 20240716
  Serious: Yes (Hospitalization)
  Sender: FDA-Public Use
  Company Number: CN-ABBOTT-2024A-1381251

PATIENT
  Age: 54 Year
  Sex: Male
  Weight: 68 kg

DRUGS (4)
  1. FENOFIBRATE [Suspect]
     Active Substance: FENOFIBRATE
     Indication: Pulmonary embolism
     Route: 048
     Dates: start: 20240424, end: 20240429
  2. KE ZHI [Concomitant]
     Indication: Venous thrombosis limb
     Route: 048
     Dates: start: 20240428, end: 20240429
  3. ENOXAPARIN SODIUM [Suspect]
     Active Substance: ENOXAPARIN SODIUM
     Indication: Chest discomfort
     Dosage: CLEXANE (ENOXAPARIN SODIUM INJECTION)
     Route: 065
     Dates: start: 20240423, end: 20240429
  4. HERBALS [Concomitant]
     Active Substance: HERBALS
     Indication: Venous thrombosis limb
     Route: 048
     Dates: start: 20240423, end: 20240429

REACTIONS (1)
  - Transaminases increased [Recovering/Resolving]

NARRATIVE: CASE EVENT DATE: 20240429
